FAERS Safety Report 15412500 (Version 1)
Quarter: 2018Q3

REPORT INFORMATION
  Report Type: Spontaneous
  Country: US (occurrence: US)
  Receive Date: 20180921
  Receipt Date: 20180921
  Transmission Date: 20181010
  Serious: Yes (Other)
  Sender: FDA-Public Use
  Company Number: US-SA-2017SA263588

PATIENT
  Age: 37 Year
  Sex: Female

DRUGS (9)
  1. TAXOTERE [Suspect]
     Active Substance: DOCETAXEL
     Indication: BREAST CANCER
     Dosage: UNK UNK,QCY
     Route: 042
     Dates: start: 20090520, end: 20090520
  2. HYDROCODONE [Concomitant]
     Active Substance: HYDROCODONE
  3. TAXOTERE [Suspect]
     Active Substance: DOCETAXEL
     Indication: INTRADUCTAL PROLIFERATIVE BREAST LESION
     Dosage: UNK UNK,QCY
     Route: 042
     Dates: start: 20090128, end: 20090128
  4. LEVAQUIN [Concomitant]
     Active Substance: LEVOFLOXACIN
  5. DOXORUBICIN [Concomitant]
     Active Substance: DOXORUBICIN
  6. EFFEXOR [Concomitant]
     Active Substance: VENLAFAXINE HYDROCHLORIDE
  7. CYTOXAN [Concomitant]
     Active Substance: CYCLOPHOSPHAMIDE
     Dosage: UNK
  8. NEOSAR [Concomitant]
     Active Substance: CYCLOPHOSPHAMIDE
     Route: 065
  9. METFORMIN [Concomitant]
     Active Substance: METFORMIN HYDROCHLORIDE

REACTIONS (1)
  - Alopecia [Recovering/Resolving]
